FAERS Safety Report 23734777 (Version 1)
Quarter: 2024Q2

REPORT INFORMATION
  Report Type: Spontaneous
  Country: JP (occurrence: JP)
  Receive Date: 20240412
  Receipt Date: 20240412
  Transmission Date: 20240716
  Serious: Yes (Death, Hospitalization, Other)
  Sender: FDA-Public Use
  Company Number: JP-GILEAD-2024-0668668

PATIENT
  Age: 76 Year
  Sex: Male

DRUGS (3)
  1. VEKLURY [Suspect]
     Active Substance: REMDESIVIR
     Indication: COVID-19
     Dosage: UNK
     Route: 065
  2. DEXAMETHASONE [Concomitant]
     Active Substance: DEXAMETHASONE
     Indication: COVID-19
  3. BARICITINIB [Concomitant]
     Active Substance: BARICITINIB
     Indication: COVID-19

REACTIONS (3)
  - Death [Fatal]
  - Pneumonia legionella [Not Recovered/Not Resolved]
  - Pneumonia pneumococcal [Not Recovered/Not Resolved]
